FAERS Safety Report 7102063-1 (Version None)
Quarter: 2010Q4

REPORT INFORMATION
  Report Type: 
  Country: None (occurrence: None)
  Receive Date: 20101115
  Receipt Date: 20101105
  Transmission Date: 20110411
  Serious: Yes (Other)
  Sender: FDA-Public Use
  Company Number: IE-ROCHE-737475

PATIENT
  Sex: Male

DRUGS (1)
  1. ISOTRETINOIN [Suspect]
     Route: 065
     Dates: start: 20090301, end: 20090701

REACTIONS (4)
  - ANXIETY [None]
  - DEPRESSION [None]
  - FLUSHING [None]
  - LIP DRY [None]
